FAERS Safety Report 4630572-3 (Version None)
Quarter: 2005Q2

REPORT INFORMATION
  Report Type: 
  Country: None (occurrence: None)
  Receive Date: 20050408
  Receipt Date: 20050120
  Transmission Date: 20051028
  Serious: Yes (Hospitalization)
  Sender: FDA-Public Use
  Company Number: US-MERCK-0501USA04041

PATIENT
  Age: 4 Year
  Sex: Female
  Weight: 20 kg

DRUGS (4)
  1. SINGULAIR [Suspect]
     Indication: ASTHMA
     Route: 048
     Dates: start: 20000501, end: 20031201
  2. SINGULAIR [Suspect]
     Route: 048
     Dates: start: 20041201
  3. FLOVENT [Concomitant]
     Route: 055
     Dates: start: 20000201
  4. ALBUTEROL [Concomitant]
     Route: 055

REACTIONS (5)
  - ASTHMA [None]
  - CONTUSION [None]
  - NASOPHARYNGITIS [None]
  - PRESCRIBED OVERDOSE [None]
  - SEPSIS [None]
